FAERS Safety Report 5558098-3 (Version None)
Quarter: 2007Q4

REPORT INFORMATION
  Report Type: 
  Country: None (occurrence: None)
  Receive Date: 20071211
  Receipt Date: 20071129
  Transmission Date: 20080405
  Serious: Yes (Hospitalization, Disabling, Other)
  Sender: FDA-Public Use
  Company Number: GXKR2007DK10288

PATIENT
  Age: 21 Year
  Sex: Female
  Weight: 60 kg

DRUGS (2)
  1. MANDOLGIN (NGX)(TRAMADOL) UNKNOWN, 50MG [Suspect]
     Indication: PAIN
     Dosage: 100 MG, ORAL
     Route: 048
     Dates: start: 20061125, end: 20061125
  2. IBUPROFEN [Concomitant]

REACTIONS (1)
  - DYSTONIA [None]
